FAERS Safety Report 5103291-7 (Version None)
Quarter: 2006Q3

REPORT INFORMATION
  Report Type: 
  Country: None (occurrence: None)
  Receive Date: 20060908
  Receipt Date: 20060831
  Transmission Date: 20061208
  Serious: Yes (Life-Threatening, Other)
  Sender: FDA-Public Use
  Company Number: 2006AL002621

PATIENT
  Age: 78 Year
  Sex: Female

DRUGS (10)
  1. FLUVOXAMINE MALEATE [Suspect]
     Dosage: 100 MG QD PO
     Route: 048
     Dates: start: 20040421, end: 20060301
  2. FUROSEMIDE [Concomitant]
  3. GLICLAZIDE [Concomitant]
  4. OMEPRAZOLE [Concomitant]
  5. PRAXILENE [Concomitant]
  6. RAMIPRIL [Concomitant]
  7. SPIRONOLACTONE [Concomitant]
  8. ZOLPIDEM TARTRATE [Concomitant]
  9. CHLORPHENIRAMINE MALEATE [Concomitant]
  10. DIGOXIN [Concomitant]

REACTIONS (3)
  - MOTOR NEURONE DISEASE [None]
  - MUSCLE CONTRACTIONS INVOLUNTARY [None]
  - MUSCLE TWITCHING [None]
